FAERS Safety Report 9579253 (Version 2)
Quarter: 2014Q1

REPORT INFORMATION
  Report Type: Spontaneous
  Country: US (occurrence: US)
  Receive Date: 20131001
  Receipt Date: 20140307
  Transmission Date: 20141002
  Serious: No
  Sender: FDA-Public Use
  Company Number: US-AMGEN-USASP2013017514

PATIENT
  Age: 20 Year
  Sex: Female

DRUGS (2)
  1. ENBREL [Suspect]
     Indication: ANKYLOSING SPONDYLITIS
     Dosage: 50 MG, QWK
     Route: 065
     Dates: start: 20130107
  2. ENBREL [Suspect]
     Dosage: UNK
     Route: 065

REACTIONS (7)
  - Mood swings [Not Recovered/Not Resolved]
  - Affect lability [Not Recovered/Not Resolved]
  - Pyrexia [Not Recovered/Not Resolved]
  - Oropharyngeal pain [Not Recovered/Not Resolved]
  - Respiratory tract congestion [Not Recovered/Not Resolved]
  - Nasopharyngitis [Not Recovered/Not Resolved]
  - Injection site bruising [Not Recovered/Not Resolved]
